FAERS Safety Report 17430811 (Version 1)
Quarter: 2020Q1

REPORT INFORMATION
  Report Type: Spontaneous
  Country: NL (occurrence: NL)
  Receive Date: 20200218
  Receipt Date: 20200218
  Transmission Date: 20200409
  Serious: Yes (Other)
  Sender: FDA-Public Use
  Company Number: NL-TEVA-2020-NL-1186334

PATIENT
  Age: 25 Year
  Sex: Male

DRUGS (2)
  1. CICLOSPORIN [Suspect]
     Active Substance: CYCLOSPORINE
     Indication: IMMUNOSUPPRESSANT DRUG THERAPY
     Route: 065
  2. PREDNISOLONE. [Suspect]
     Active Substance: PREDNISOLONE
     Indication: ACUTE GRAFT VERSUS HOST DISEASE
     Dosage: 100 MILLIGRAM DAILY; 100 MG/DAY = 1MG/KG
     Route: 065

REACTIONS (3)
  - Rebound effect [Recovering/Resolving]
  - Oesophageal candidiasis [Recovered/Resolved]
  - Steroid diabetes [Recovered/Resolved]
